FAERS Safety Report 5353312-1 (Version None)
Quarter: 2007Q2

REPORT INFORMATION
  Report Type: 
  Country: None (occurrence: None)
  Receive Date: 20070518
  Receipt Date: 20070307
  Transmission Date: 20071010
  Serious: No
  Sender: FDA-Public Use
  Company Number: TPA2007A00567

PATIENT
  Age: 30 Year
  Sex: Female

DRUGS (1)
  1. ROZEREM [Suspect]
     Indication: SLEEP DISORDER
     Dosage: PER ORAL
     Route: 048

REACTIONS (4)
  - DRUG INEFFECTIVE [None]
  - FATIGUE [None]
  - NIGHTMARE [None]
  - SOMNOLENCE [None]
